FAERS Safety Report 14881261 (Version 2)
Quarter: 2018Q2

REPORT INFORMATION
  Report Type: Report from Study
  Country: CZ (occurrence: CZ)
  Receive Date: 20180511
  Receipt Date: 20180601
  Transmission Date: 20180711
  Serious: Yes (Death, Other)
  Sender: FDA-Public Use
  Company Number: CZ-SHIRE-CZ201817729

PATIENT

DRUGS (5)
  1. IDURSULFASE [Suspect]
     Active Substance: IDURSULFASE
     Dosage: 0.33 MG/KG, 1X/WEEK
     Route: 065
     Dates: start: 20130320
  2. IDURSULFASE [Suspect]
     Active Substance: IDURSULFASE
     Dosage: 0.35 MG/KG, 1X/WEEK
     Route: 065
     Dates: start: 20120914
  3. IDURSULFASE [Suspect]
     Active Substance: IDURSULFASE
     Indication: MUCOPOLYSACCHARIDOSIS II
     Dosage: 0.5 MG/KG, 1X/WEEK
     Route: 065
     Dates: start: 20061120
  4. IDURSULFASE [Suspect]
     Active Substance: IDURSULFASE
     Dosage: 0.4 MG/KG, 1X/WEEK
     Route: 065
     Dates: start: 20111123
  5. IDURSULFASE [Suspect]
     Active Substance: IDURSULFASE
     Dosage: 0.34 MG/KG, 1X/WEEK
     Route: 065
     Dates: start: 20130913, end: 20180405

REACTIONS (1)
  - Cardiac failure [Fatal]
